FAERS Safety Report 9330891 (Version 1)
Quarter: 2013Q2

REPORT INFORMATION
  Report Type: Spontaneous
  Country: US (occurrence: None)
  Receive Date: 20130531
  Receipt Date: 20130531
  Transmission Date: 20140414
  Serious: Yes (Hospitalization)
  Sender: FDA-Public Use
  Company Number: CA-ALSI-201300133

PATIENT
  Age: 69 Year
  Sex: Female

DRUGS (2)
  1. NITROUS OXIDE [Suspect]
  2. EXELON [Suspect]

REACTIONS (2)
  - Hypertension [None]
  - Sinus bradycardia [None]
